FAERS Safety Report 4584096-2 (Version None)
Quarter: 2005Q1

REPORT INFORMATION
  Report Type: 
  Country: None (occurrence: None)
  Receive Date: 20050216
  Receipt Date: 20040109
  Transmission Date: 20050727
  Serious: Yes (Hospitalization)
  Sender: FDA-Public Use
  Company Number: BE-ROCHE-355469

PATIENT
  Age: 63 Year
  Sex: Female
  Weight: 57.7 kg

DRUGS (20)
  1. DACLIZUMAB [Suspect]
     Route: 042
     Dates: start: 20031208
  2. MYCOPHENOLATE MOFETIL [Suspect]
     Route: 048
     Dates: start: 20031209
  3. MYCOPHENOLATE MOFETIL [Suspect]
     Route: 048
  4. TACROLIMUS [Suspect]
     Route: 048
     Dates: start: 20031208
  5. METHYLPREDNISOLONE [Suspect]
     Route: 065
  6. CACO3 [Concomitant]
     Route: 048
  7. 1 ALPHA LEO [Concomitant]
     Route: 048
  8. BACTRIM DS [Concomitant]
     Route: 048
  9. ZOVIRAX [Concomitant]
     Route: 048
  10. CIPROFLOXACIN [Concomitant]
     Route: 048
  11. PULMICORT [Concomitant]
     Dosage: DOSING AMOUNT REPORTED AS PUFF.
     Route: 055
  12. OXIVENT [Concomitant]
     Dosage: DOSING AMOUNT REPORTED AS PUFF.
     Route: 055
  13. ZESTRIL [Concomitant]
     Route: 048
  14. FLUDEX [Concomitant]
     Route: 048
  15. NICOTIBINE [Concomitant]
     Route: 048
  16. LOGASTRIC [Concomitant]
     Route: 048
  17. AMLOR [Concomitant]
  18. CLAMOXYL [Concomitant]
  19. MOTILIUM [Concomitant]
  20. MAGNESIUM [Concomitant]
     Dosage: REPORTED AS 'ULTRAMAGNESIUM'.

REACTIONS (2)
  - BLOOD CREATININE INCREASED [None]
  - HERPES VIRUS INFECTION [None]
